FAERS Safety Report 17467086 (Version 1)
Quarter: 2020Q1

REPORT INFORMATION
  Report Type: Spontaneous
  Country: US (occurrence: US)
  Receive Date: 20200227
  Receipt Date: 20200227
  Transmission Date: 20200409
  Serious: Yes (Hospitalization)
  Sender: FDA-Public Use
  Company Number: US-MYLANLABS-2020M1021686

PATIENT
  Age: 71 Year
  Sex: Male

DRUGS (1)
  1. BUDESONIDE. [Suspect]
     Active Substance: BUDESONIDE
     Indication: CROHN^S DISEASE
     Dosage: 9 MILLIGRAM
     Route: 048

REACTIONS (5)
  - Hypocalcaemia [Recovering/Resolving]
  - Hepatic enzyme increased [Recovered/Resolved]
  - Hypokalaemia [Recovering/Resolving]
  - Rhabdomyolysis [Recovering/Resolving]
  - Hypomagnesaemia [Recovering/Resolving]
